FAERS Safety Report 6823087-5 (Version None)
Quarter: 2010Q3

REPORT INFORMATION
  Report Type: 
  Country: None (occurrence: None)
  Receive Date: 20100708
  Receipt Date: 20100705
  Transmission Date: 20110219
  Serious: Yes (Other)
  Sender: FDA-Public Use
  Company Number: ES-MERCK-1007ESP00007

PATIENT
  Age: 24 Month
  Sex: Female

DRUGS (1)
  1. SINGULAIR [Suspect]
     Indication: WHEEZING
     Route: 048
     Dates: start: 20100101, end: 20100601

REACTIONS (1)
  - LOWER GASTROINTESTINAL HAEMORRHAGE [None]
